FAERS Safety Report 5794844-1 (Version None)
Quarter: 2008Q2

REPORT INFORMATION
  Report Type: 
  Country: None (occurrence: None)
  Receive Date: 20080630
  Receipt Date: 20080616
  Transmission Date: 20081010
  Serious: Yes (Hospitalization, Other)
  Sender: FDA-Public Use
  Company Number: FR-ROCHE-570813

PATIENT
  Age: 50 Year
  Sex: Male

DRUGS (3)
  1. ISOTRETINOIN [Suspect]
     Indication: SKIN DISORDER
     Route: 065
     Dates: start: 20000101
  2. ANXIOLYTICS [Concomitant]
  3. NEUROLEPTIC [Concomitant]

REACTIONS (5)
  - ERYTHEMA [None]
  - FACIAL PALSY [None]
  - ILL-DEFINED DISORDER [None]
  - MENTAL DISORDER [None]
  - SUICIDE ATTEMPT [None]
